FAERS Safety Report 6311164-7 (Version None)
Quarter: 2009Q3

REPORT INFORMATION
  Report Type: 
  Country: None (occurrence: None)
  Receive Date: 20090817
  Receipt Date: 20090806
  Transmission Date: 20100115
  Serious: Yes (Other)
  Sender: FDA-Public Use
  Company Number: US-AMGEN-QUU359136

PATIENT
  Sex: Female

DRUGS (2)
  1. ENBREL [Suspect]
     Indication: RHEUMATOID ARTHRITIS
     Route: 058
     Dates: start: 20050601
  2. METHOTREXATE [Concomitant]
     Route: 048

REACTIONS (9)
  - ANAESTHETIC COMPLICATION [None]
  - CIRCULATORY COLLAPSE [None]
  - HYPOTENSION [None]
  - INJECTION SITE ERYTHEMA [None]
  - INJECTION SITE HAEMATOMA [None]
  - INJECTION SITE SWELLING [None]
  - POST PROCEDURAL COMPLICATION [None]
  - RHEUMATOID NODULE [None]
  - TENDON INJURY [None]
